FAERS Safety Report 20867372 (Version 1)
Quarter: 2022Q2

REPORT INFORMATION
  Report Type: Spontaneous
  Country: US (occurrence: None)
  Receive Date: 20220523
  Receipt Date: 20220523
  Transmission Date: 20220720
  Serious: No
  Sender: FDA-Public Use
  Company Number: None

PATIENT
  Age: 58 Year
  Sex: Male
  Weight: 90 kg

DRUGS (1)
  1. SILDENAFIL [Suspect]
     Active Substance: SILDENAFIL

REACTIONS (7)
  - Rash [None]
  - Thirst [None]
  - Lethargy [None]
  - Feeling abnormal [None]
  - Skin swelling [None]
  - Mouth swelling [None]
  - Disturbance in attention [None]

NARRATIVE: CASE EVENT DATE: 20220505
